FAERS Safety Report 9339318 (Version 2)
Quarter: 2013Q2

REPORT INFORMATION
  Report Type: Report from Study
  Country: US (occurrence: US)
  Receive Date: 20130610
  Receipt Date: 20130620
  Transmission Date: 20140414
  Serious: Yes (Other)
  Sender: FDA-Public Use
  Company Number: PHEH2013US012311

PATIENT
  Sex: Female
  Weight: 91.4 kg

DRUGS (8)
  1. GILENYA [Suspect]
     Indication: MULTIPLE SCLEROSIS
     Dosage: 0.5 MG, QD
     Route: 048
     Dates: start: 20130302
  2. MACROBID [Concomitant]
     Indication: MULTIPLE SCLEROSIS
  3. WELLBUTRIN [Concomitant]
     Indication: DEPRESSION
  4. NORTRIPTYLINE [Concomitant]
     Indication: MULTIPLE SCLEROSIS
  5. NADOLOL [Concomitant]
     Indication: MULTIPLE SCLEROSIS
  6. CLONAZEPAM [Concomitant]
     Indication: MULTIPLE SCLEROSIS
  7. PROVIGIL [Concomitant]
     Indication: FATIGUE
     Dosage: 20 MG, QD
  8. KLONOPIN [Concomitant]
     Route: 048

REACTIONS (4)
  - Conjunctival haemorrhage [Not Recovered/Not Resolved]
  - Nasopharyngitis [Unknown]
  - Paranasal sinus hypersecretion [Not Recovered/Not Resolved]
  - Oropharyngeal pain [Not Recovered/Not Resolved]
